FAERS Safety Report 12507268 (Version 3)
Quarter: 2016Q3

REPORT INFORMATION
  Report Type: Spontaneous
  Country: None (occurrence: US)
  Receive Date: 20160629
  Receipt Date: 20160826
  Transmission Date: 20161109
  Serious: No
  Sender: FDA-Public Use
  Company Number: US-TEVA-670590ACC

PATIENT
  Age: 24 Year
  Sex: Female
  Weight: 62.2 kg

DRUGS (4)
  1. SOLIRIS [Concomitant]
     Active Substance: ECULIZUMAB
     Indication: APLASTIC ANAEMIA
  2. SOLIRIS [Concomitant]
     Active Substance: ECULIZUMAB
     Indication: PAROXYSMAL NOCTURNAL HAEMOGLOBINURIA
  3. PARAGARD T 380A [Suspect]
     Active Substance: COPPER
     Indication: CONTRACEPTION
     Dates: start: 20160616
  4. PARAGARD T 380A [Suspect]
     Active Substance: COPPER
     Dates: start: 20160718

REACTIONS (4)
  - Nausea [Recovered/Resolved]
  - Presyncope [Recovered/Resolved]
  - Abdominal pain lower [Recovered/Resolved]
  - Uterine pain [Recovered/Resolved]

NARRATIVE: CASE EVENT DATE: 20160616
